FAERS Safety Report 7505719-1 (Version None)
Quarter: 2011Q2

REPORT INFORMATION
  Report Type: 
  Country: None (occurrence: None)
  Receive Date: 20110405
  Receipt Date: 20110107
  Transmission Date: 20111010
  Serious: No
  Sender: FDA-Public Use
  Company Number: 2011IP000005

PATIENT
  Age: 44 Year
  Sex: Male

DRUGS (3)
  1. OPTIFREE [Concomitant]
  2. BEPREVE [Suspect]
     Indication: OCULAR HYPERAEMIA
     Dates: start: 20101207, end: 20101221
  3. BEPREVE [Suspect]
     Indication: EYE PRURITUS
     Dates: start: 20101207, end: 20101221

REACTIONS (6)
  - DYSGEUSIA [None]
  - NAUSEA [None]
  - EYE INFLAMMATION [None]
  - EYE SWELLING [None]
  - HEADACHE [None]
  - DRUG INEFFECTIVE FOR UNAPPROVED INDICATION [None]
